FAERS Safety Report 19962980 (Version 1)
Quarter: 2021Q4

REPORT INFORMATION
  Report Type: Spontaneous
  Country: US (occurrence: US)
  Receive Date: 20211013
  Receipt Date: 20211013
  Transmission Date: 20220303
  Serious: No
  Sender: FDA-Public Use
  Company Number: None

PATIENT
  Sex: Female

DRUGS (1)
  1. TREMFYA [Suspect]
     Active Substance: GUSELKUMAB
     Indication: Psoriatic arthropathy
     Dosage: ?          OTHER FREQUENCY:EVERY 8 WKS;
     Route: 058
     Dates: start: 202107, end: 202110

REACTIONS (3)
  - Drug ineffective [None]
  - Treatment noncompliance [None]
  - Intentional dose omission [None]
